FAERS Safety Report 12928962 (Version 6)
Quarter: 2019Q1

REPORT INFORMATION
  Report Type: Spontaneous
  Country: US (occurrence: US)
  Receive Date: 20161110
  Receipt Date: 20190119
  Transmission Date: 20190417
  Serious: Yes (Hospitalization, Congenital Anomaly, Other)
  Sender: FDA-Public Use
  Company Number: PHEH2016US029196

PATIENT
  Sex: Male

DRUGS (2)
  1. ZOFRAN [Suspect]
     Active Substance: ONDANSETRON HYDROCHLORIDE
     Indication: FOETAL EXPOSURE DURING PREGNANCY
     Dosage: MOTHER^S DOSE: 1 DF, QD
     Route: 064
  2. ONDANSETRON. [Suspect]
     Active Substance: ONDANSETRON
     Indication: FOETAL EXPOSURE DURING PREGNANCY
     Dosage: MOTHER^S DOSE: 1 DF, QD
     Route: 064

REACTIONS (54)
  - Impaired gastric emptying [Unknown]
  - Cardiac murmur [Unknown]
  - Ear infection [Unknown]
  - Ear pain [Unknown]
  - Constipation [Unknown]
  - Dysmorphism [Unknown]
  - Micrognathia [Unknown]
  - Urinary tract infection [Unknown]
  - Epilepsy [Unknown]
  - Eustachian tube dysfunction [Unknown]
  - Injury [Unknown]
  - Rhinorrhoea [Unknown]
  - Cough [Unknown]
  - Congenital hand malformation [Unknown]
  - Duane^s syndrome [Unknown]
  - Emotional distress [Unknown]
  - Pain [Unknown]
  - Anxiety [Unknown]
  - Vesicoureteric reflux [Unknown]
  - Adenoidal hypertrophy [Unknown]
  - Ankyloglossia congenital [Unknown]
  - Craniofacial deformity [Unknown]
  - Hypertelorism of orbit [Unknown]
  - Infantile apnoea [Unknown]
  - Failure to thrive [Unknown]
  - Developmental delay [Unknown]
  - Gastrooesophageal reflux disease [Unknown]
  - Upper respiratory tract infection [Unknown]
  - Cerumen impaction [Unknown]
  - Pierre Robin syndrome [Unknown]
  - Congenital foot malformation [Unknown]
  - Optic atrophy [Unknown]
  - Nasal congestion [Unknown]
  - Renal fusion anomaly [Unknown]
  - Patent ductus arteriosus [Unknown]
  - Foetal exposure during pregnancy [Unknown]
  - Seizure [Unknown]
  - Respiratory failure [Unknown]
  - Ureteric dilatation [Unknown]
  - Hypertonia [Unknown]
  - Selective eating disorder [Unknown]
  - Cleft palate [Unknown]
  - Congenital anomaly [Unknown]
  - Atrial septal defect [Unknown]
  - Kidney malformation [Unknown]
  - Bacteraemia [Unknown]
  - Sepsis neonatal [Unknown]
  - Retrognathia [Unknown]
  - Breathing-related sleep disorder [Unknown]
  - Noninfective gingivitis [Unknown]
  - Anhedonia [Unknown]
  - Strabismus [Unknown]
  - Motor developmental delay [Unknown]
  - Vomiting [Unknown]
